FAERS Safety Report 10100326 (Version 1)
Quarter: 2014Q2

REPORT INFORMATION
  Report Type: Spontaneous
  Country: US (occurrence: US)
  Receive Date: 20140423
  Receipt Date: 20140423
  Transmission Date: 20141212
  Serious: No
  Sender: FDA-Public Use
  Company Number: US-ENDO PHARMACEUTICALS INC.-CLON20130016

PATIENT
  Sex: Female
  Weight: 69.92 kg

DRUGS (2)
  1. CLONIDINE HCL TABLETS 0.1MG [Suspect]
     Indication: HYPERTENSION
     Route: 048
  2. CLONIDINE HCL TABLETS 0.3MG [Concomitant]
     Indication: HYPERTENSION
     Route: 048
     Dates: end: 2013

REACTIONS (3)
  - Drug dispensing error [Recovered/Resolved]
  - Heart rate increased [Recovered/Resolved]
  - Drug ineffective [Recovered/Resolved]
